FAERS Safety Report 4463833-1 (Version None)
Quarter: 2004Q3

REPORT INFORMATION
  Report Type: 
  Country: None (occurrence: None)
  Receive Date: 20040929
  Receipt Date: 20040916
  Transmission Date: 20050211
  Serious: Yes (Life-Threatening, Other)
  Sender: FDA-Public Use
  Company Number: 2004067469

PATIENT
  Age: 34 Year
  Sex: Male
  Weight: 73 kg

DRUGS (6)
  1. ATORVASTATIN (ATORVASTATIN) [Suspect]
     Indication: TYPE IIA HYPERLIPIDAEMIA
     Dosage: 80 MG (80 MG 1 IN 1 D), ORAL
     Route: 048
     Dates: start: 20030108
  2. METFORMIN HCL [Concomitant]
  3. NICORANDIL (NICORANDIL) [Concomitant]
  4. GABAPENTIN [Concomitant]
  5. LANSOPRAZOLE [Concomitant]
  6. ESCITALOPRAM (ESCITALOPRAM) [Concomitant]

REACTIONS (1)
  - OESOPHAGEAL CARCINOMA [None]
